FAERS Safety Report 8115012-4 (Version None)
Quarter: 2012Q1

REPORT INFORMATION
  Report Type: 
  Country: None (occurrence: None)
  Receive Date: 20120131
  Receipt Date: 20120127
  Transmission Date: 20120608
  Serious: Yes (Hospitalization, Other)
  Sender: FDA-Public Use
  Company Number: 2011SP019410

PATIENT
  Age: 26 Year
  Sex: Female
  Weight: 113.3993 kg

DRUGS (4)
  1. NUVARING [Suspect]
     Indication: CONTRACEPTION
     Dates: end: 20090421
  2. NUVARING [Suspect]
     Indication: CONTRACEPTION
     Dates: start: 20030401
  3. SEROQUEL [Concomitant]
  4. AMBIEN [Concomitant]

REACTIONS (15)
  - INJURY [None]
  - PARAESTHESIA [None]
  - ABORTION THREATENED [None]
  - PULMONARY EMBOLISM [None]
  - ABORTION SPONTANEOUS [None]
  - MATERNAL EXPOSURE DURING PREGNANCY [None]
  - PLEURAL EFFUSION [None]
  - NAUSEA [None]
  - VAGINAL HAEMORRHAGE [None]
  - DIZZINESS [None]
  - VOMITING [None]
  - THROMBOSIS [None]
  - ECTOPIC PREGNANCY [None]
  - ABDOMINAL PAIN [None]
  - INFLAMMATION [None]
